FAERS Safety Report 7672603 (Version 1)
Quarter: 2020Q3

REPORT INFORMATION
  Report Type: Report from Study
  Country: US (occurrence: US)
  Receive Date: 20101117
  Receipt Date: 20101117
  Transmission Date: 20201104
  Serious: Yes (Other)
  Sender: FDA-Public Use
  Company Number: US-ROCHE-740512

PATIENT
  Age: 74 Year
  Sex: Female

DRUGS (11)
  1. IRON [Concomitant]
     Active Substance: IRON
  2. RANITIDINE. [Concomitant]
     Active Substance: RANITIDINE
  3. METOPROLOL. [Concomitant]
     Active Substance: METOPROLOL
  4. PLAVIX [Concomitant]
     Active Substance: CLOPIDOGREL BISULFATE
  5. LOVAZA [Concomitant]
     Active Substance: OMEGA-3-ACID ETHYL ESTERS
  6. LISINOPRIL. [Concomitant]
     Active Substance: LISINOPRIL
  7. HCTZ [Concomitant]
     Active Substance: HYDROCHLOROTHIAZIDE
  8. IBANDRONIC ACID. [Suspect]
     Active Substance: IBANDRONIC ACID
     Indication: OSTEOPENIA
     Dosage: START DATE: SEVERAL YEARS BACK
     Route: 048
     Dates: end: 201009
  9. UBIDECARENONE. [Concomitant]
     Active Substance: UBIDECARENONE
  10. JANUVIA [Concomitant]
     Active Substance: SITAGLIPTIN PHOSPHATE
  11. LYRICA [Concomitant]
     Active Substance: PREGABALIN

REACTIONS (5)
  - Arthritis [Unknown]
  - Bone disorder [Unknown]
  - Myocardial infarction [Unknown]
  - Haematoma [Unknown]
  - Spinal fracture [Unknown]

NARRATIVE: CASE EVENT DATE: 20100301
